FAERS Safety Report 4277228-7 (Version None)
Quarter: 2004Q1

REPORT INFORMATION
  Report Type: 
  Country: None (occurrence: None)
  Receive Date: 20040120
  Receipt Date: 20040112
  Transmission Date: 20041129
  Serious: Yes (Life-Threatening, Hospitalization)
  Sender: FDA-Public Use
  Company Number: NSADSS2002027584

PATIENT
  Age: 48 Year
  Sex: Female

DRUGS (7)
  1. REMICADE [Suspect]
     Indication: RHEUMATOID ARTHRITIS
     Dosage: 30 MG, 1 IN 1 AS NECESSARY, INTRAVENOUS DRIP
     Route: 041
     Dates: start: 20020521, end: 20020521
  2. SINGULAIR [Concomitant]
  3. GLUCOSAMINE (GLUCOSAMINE) [Concomitant]
  4. MSM (METHYLSULFONAL) [Concomitant]
  5. VIOXX [Concomitant]
  6. METHOTREXATE [Concomitant]
  7. MEDROL [Concomitant]

REACTIONS (1)
  - VASCULITIS CEREBRAL [None]
